FAERS Safety Report 13734097 (Version 1)
Quarter: 2017Q3

REPORT INFORMATION
  Report Type: Other
  Country: US (occurrence: US)
  Receive Date: 20170708
  Receipt Date: 20170708
  Transmission Date: 20171127
  Serious: Yes (Death, Other)
  Sender: FDA-Public Use
  Company Number: US-ACTELION-A-US2017-156392

PATIENT
  Sex: Male

DRUGS (8)
  1. OXYGEN. [Concomitant]
     Active Substance: OXYGEN
     Dosage: 0.25 L/MIN, UNK
  2. OXYGEN. [Concomitant]
     Active Substance: OXYGEN
     Dosage: 0.5-1 L/MIN, UNK
  3. VENTAVIS [Suspect]
     Active Substance: ILOPROST
     Indication: PULMONARY ARTERIAL HYPERTENSION
     Route: 055
  4. BOSENTAN. [Concomitant]
     Active Substance: BOSENTAN
     Route: 065
  5. METHYLPREDNISOLONE. [Concomitant]
     Active Substance: METHYLPREDNISOLONE
  6. BOSENTAN. [Concomitant]
     Active Substance: BOSENTAN
     Route: 065
  7. SILDENAFIL. [Concomitant]
     Active Substance: SILDENAFIL
  8. DIURETICS [Concomitant]
     Active Substance: UNSPECIFIED INGREDIENT

REACTIONS (6)
  - Respiratory disorder [Fatal]
  - Drug ineffective [Unknown]
  - Drug administered to patient of inappropriate age [Unknown]
  - Pulmonary haemorrhage [Unknown]
  - Pulmonary arterial hypertension [Fatal]
  - Off label use [Unknown]
